FAERS Safety Report 11203790 (Version 1)
Quarter: 2015Q2

REPORT INFORMATION
  Report Type: Spontaneous
  Country: US (occurrence: US)
  Receive Date: 20150619
  Receipt Date: 20150619
  Transmission Date: 20150821
  Serious: Yes (Hospitalization)
  Sender: FDA-Public Use
  Company Number: US-ABBVIE-15P-163-1408210-00

PATIENT
  Sex: Male

DRUGS (3)
  1. FORTESTA [Suspect]
     Active Substance: TESTOSTERONE
     Indication: ANDROGEN REPLACEMENT THERAPY
     Route: 065
  2. ANDROGEL [Suspect]
     Active Substance: TESTOSTERONE
     Indication: ANDROGEN REPLACEMENT THERAPY
     Route: 065
  3. ANDROGEL [Suspect]
     Active Substance: TESTOSTERONE
     Route: 065

REACTIONS (4)
  - Cerebral artery occlusion [Unknown]
  - Cerebral infarction [Unknown]
  - Physical disability [Unknown]
  - Angiopathy [Unknown]
